FAERS Safety Report 7587389-X (Version None)
Quarter: 2011Q3

REPORT INFORMATION
  Report Type: 
  Country: None (occurrence: None)
  Receive Date: 20110702
  Receipt Date: 20110627
  Transmission Date: 20111222
  Serious: Yes (Life-Threatening, Hospitalization, Other)
  Sender: FDA-Public Use
  Company Number: US-ASTRAZENECA-2011SE08966

PATIENT
  Age: 61 Year
  Sex: Male
  Weight: 102.1 kg

DRUGS (20)
  1. NEXIUM [Suspect]
     Route: 048
     Dates: start: 20080101
  2. LOVASTATIN [Concomitant]
     Indication: BLOOD CHOLESTEROL
  3. SEROQUEL [Suspect]
     Route: 048
     Dates: start: 20080101
  4. PAIN MEDICATION [Concomitant]
     Indication: PAIN
  5. SEROQUEL [Suspect]
     Indication: BIPOLAR I DISORDER
     Route: 048
     Dates: start: 20070101
  6. LISINOPRIL [Concomitant]
  7. NEXIUM [Suspect]
     Route: 048
     Dates: start: 20080101
  8. SEROQUEL [Suspect]
     Indication: BIPOLAR DISORDER
     Route: 048
     Dates: start: 20070101
  9. GABAPENTIN [Concomitant]
  10. TRAZODONE HCL [Concomitant]
     Indication: SLEEP DISORDER
  11. PROZAC [Concomitant]
     Indication: DEPRESSION
     Route: 048
     Dates: start: 20080101
  12. NEURONTIN [Concomitant]
     Indication: RESTLESS LEGS SYNDROME
  13. NEXIUM [Suspect]
     Indication: GASTROOESOPHAGEAL REFLUX DISEASE
     Route: 048
     Dates: start: 20070101
  14. SEROQUEL [Suspect]
     Indication: DEPRESSION
     Route: 048
     Dates: start: 20070101
  15. SEROQUEL [Suspect]
     Route: 048
     Dates: start: 20080101
  16. BACLOFEN [Concomitant]
     Indication: RESTLESS LEGS SYNDROME
  17. METFORMIN HCL [Concomitant]
  18. NEXIUM [Suspect]
     Route: 048
     Dates: start: 20070101
  19. SEROQUEL [Suspect]
     Route: 048
     Dates: start: 20080101
  20. ALLOPURINOL [Concomitant]
     Indication: GOUT

REACTIONS (6)
  - CHRONIC OBSTRUCTIVE PULMONARY DISEASE [None]
  - WHEEZING [None]
  - LUNG NEOPLASM MALIGNANT [None]
  - PNEUMONECTOMY [None]
  - DYSPNOEA [None]
  - LUNG DISORDER [None]
